FAERS Safety Report 15824033 (Version 1)
Quarter: 2019Q1

REPORT INFORMATION
  Report Type: Spontaneous
  Country: None (occurrence: FI)
  Receive Date: 20190114
  Receipt Date: 20190114
  Transmission Date: 20190417
  Serious: Yes (Other)
  Sender: FDA-Public Use
  Company Number: FI-POPULATION COUNCIL, INC.-2061179

PATIENT
  Sex: Female

DRUGS (1)
  1. JADELLE [Suspect]
     Active Substance: LEVONORGESTREL
     Route: 059

REACTIONS (1)
  - Device dislocation [None]
